FAERS Safety Report 13889624 (Version 1)
Quarter: 2017Q3

REPORT INFORMATION
  Report Type: Spontaneous
  Country: GB (occurrence: GB)
  Receive Date: 20170822
  Receipt Date: 20170822
  Transmission Date: 20171127
  Serious: Yes (Disabling, Other)
  Sender: FDA-Public Use
  Company Number: GB-ROCHE-1971784

PATIENT
  Sex: Female
  Weight: 51.8 kg

DRUGS (1)
  1. AVASTIN [Suspect]
     Active Substance: BEVACIZUMAB
     Indication: OVARIAN CANCER
     Route: 042
     Dates: start: 20170111

REACTIONS (7)
  - Arthritis [Unknown]
  - Arthralgia [Unknown]
  - Walking aid user [Not Recovered/Not Resolved]
  - Gait disturbance [Unknown]
  - Arthralgia [Not Recovered/Not Resolved]
  - Pain in extremity [Unknown]
  - Pain in extremity [Not Recovered/Not Resolved]

NARRATIVE: CASE EVENT DATE: 20170717
